FAERS Safety Report 5787758-4 (Version None)
Quarter: 2008Q2

REPORT INFORMATION
  Report Type: 
  Country: None (occurrence: None)
  Receive Date: 20080623
  Receipt Date: 20080613
  Transmission Date: 20081010
  Serious: Yes (Other)
  Sender: FDA-Public Use
  Company Number: 2008AP001110

PATIENT
  Age: 63 Year
  Sex: Female

DRUGS (4)
  1. PAROXETINE HCL [Suspect]
     Indication: ANXIETY
     Dosage: 5 MG;QD;PO; 2.5 MG;QD;PO
     Route: 048
     Dates: end: 20080501
  2. PAROXETINE HCL [Suspect]
     Indication: ANXIETY
     Dosage: 5 MG;QD;PO; 2.5 MG;QD;PO
     Route: 048
     Dates: start: 20080401
  3. RANITIDINE HCL [Concomitant]
  4. VITAMINS [Concomitant]

REACTIONS (12)
  - BACK PAIN [None]
  - CHILLS [None]
  - DIARRHOEA [None]
  - DRUG INEFFECTIVE [None]
  - DRY MOUTH [None]
  - FEELING ABNORMAL [None]
  - GINGIVAL SWELLING [None]
  - HEADACHE [None]
  - NAUSEA [None]
  - PRURITUS [None]
  - SKIN BURNING SENSATION [None]
  - TREMOR [None]
